FAERS Safety Report 14523195 (Version 2)
Quarter: 2019Q1

REPORT INFORMATION
  Report Type: Report from Study
  Country: US (occurrence: US)
  Receive Date: 20180212
  Receipt Date: 20190215
  Transmission Date: 20190417
  Serious: Yes (Hospitalization)
  Sender: FDA-Public Use
  Company Number: US-AMAG PHARMACEUTICALS, INC.-AMAG201800453

PATIENT

DRUGS (7)
  1. MAKENA [Suspect]
     Active Substance: HYDROXYPROGESTERONE CAPROATE
     Indication: PREMATURE DELIVERY
     Dosage: 250 MG/ML, WEEKLY
     Route: 030
     Dates: start: 20171212, end: 20180228
  2. VITAMINS NOS [Concomitant]
     Active Substance: VITAMINS
     Indication: PRODUCT USED FOR UNKNOWN INDICATION
     Dosage: 1000 MCG/DL, UNK
     Route: 048
     Dates: start: 20170818
  3. PRENATAL VITAMINS [Concomitant]
     Active Substance: VITAMINS
     Indication: PRENATAL CARE
     Dosage: 1 TABS, UNK
     Route: 048
     Dates: start: 2017
  4. VITAMIN D [Concomitant]
     Active Substance: CHOLECALCIFEROL
     Indication: VITAMIN SUPPLEMENTATION
     Dosage: 2000 UNK, QD
     Route: 048
     Dates: start: 20171229
  5. VITAMIN C [Concomitant]
     Active Substance: ASCORBIC ACID
     Indication: VITAMIN SUPPLEMENTATION
     Dosage: 1000 UNK, TID
     Route: 048
     Dates: start: 20171229
  6. VITAMIN-B COMPLEX [Concomitant]
     Indication: VITAMIN SUPPLEMENTATION
     Dosage: 1 UNK, UNK
     Route: 048
     Dates: start: 20171222
  7. PEPCID AC [Concomitant]
     Active Substance: FAMOTIDINE
     Indication: GASTROOESOPHAGEAL REFLUX DISEASE
     Dosage: 1 TABS, UNK
     Route: 048
     Dates: start: 20171229

REACTIONS (17)
  - Feeling hot [Recovered/Resolved]
  - Anxiety [Unknown]
  - Pruritus [Unknown]
  - Erythema [Recovered/Resolved]
  - Uterine contractions during pregnancy [Not Recovered/Not Resolved]
  - Dyspnoea [Recovered/Resolved]
  - Fatigue [Unknown]
  - Depression [Unknown]
  - Dizziness [Recovered/Resolved]
  - Ligament pain [Unknown]
  - Premature labour [Not Recovered/Not Resolved]
  - Peripheral swelling [Unknown]
  - Nasopharyngitis [Unknown]
  - Injection site pain [Unknown]
  - Migraine [Unknown]
  - Respiratory tract infection [Recovered/Resolved]
  - Anaemia of pregnancy [Unknown]

NARRATIVE: CASE EVENT DATE: 20170123
